FAERS Safety Report 17684075 (Version 2)
Quarter: 2020Q2

REPORT INFORMATION
  Report Type: Spontaneous
  Country: US (occurrence: US)
  Receive Date: 20200420
  Receipt Date: 20200527
  Transmission Date: 20200714
  Serious: No
  Sender: FDA-Public Use
  Company Number: US-ASTRAZENECA-2020SE45524

PATIENT
  Age: 23740 Day
  Sex: Female
  Weight: 74.4 kg

DRUGS (2)
  1. BYDUREON BCISE [Suspect]
     Active Substance: EXENATIDE
     Indication: TYPE 2 DIABETES MELLITUS
     Route: 058
  2. BYDUREON BCISE [Suspect]
     Active Substance: EXENATIDE
     Indication: TYPE 2 DIABETES MELLITUS
     Route: 058
     Dates: start: 201908, end: 20200325

REACTIONS (7)
  - Product dose omission [Recovered/Resolved]
  - Product closure removal difficult [Unknown]
  - Intentional device misuse [Unknown]
  - Headache [Unknown]
  - Injection site pain [Unknown]
  - Wrong technique in device usage process [Recovered/Resolved]
  - Device breakage [Unknown]

NARRATIVE: CASE EVENT DATE: 20200325
